FAERS Safety Report 14616372 (Version 1)
Quarter: 2018Q1

REPORT INFORMATION
  Report Type: Spontaneous
  Country: US (occurrence: US)
  Receive Date: 20180309
  Receipt Date: 20180309
  Transmission Date: 20180509
  Serious: No
  Sender: FDA-Public Use
  Company Number: US-PFIZER INC-2018096061

PATIENT
  Age: 76 Year
  Sex: Female
  Weight: 59.87 kg

DRUGS (9)
  1. DIOVAN [Concomitant]
     Active Substance: VALSARTAN
     Indication: BLOOD PRESSURE ABNORMAL
     Dosage: 80 MG, 1X/DAY
     Route: 048
  2. ASPIRIN. [Concomitant]
     Active Substance: ASPIRIN
     Indication: CARDIAC DISORDER
     Dosage: 81 MG, 1X/DAY
     Route: 048
  3. ATORVASTATIN [Concomitant]
     Active Substance: ATORVASTATIN
     Indication: BLOOD CHOLESTEROL INCREASED
     Dosage: 20 MG, 1X/DAY
     Route: 048
  4. ISOSORBIDE. [Concomitant]
     Active Substance: ISOSORBIDE
     Dosage: 30 MG, 1X/DAY
     Route: 048
  5. PROTONIX [Concomitant]
     Active Substance: PANTOPRAZOLE SODIUM
     Indication: GASTROOESOPHAGEAL REFLUX DISEASE
     Dosage: 40 MG, 1X/DAY
     Route: 048
  6. XELJANZ XR [Suspect]
     Active Substance: TOFACITINIB CITRATE
     Indication: RHEUMATOID ARTHRITIS
     Dosage: 11 MG, ONCE A DAY
     Route: 048
  7. PLAVIX [Concomitant]
     Active Substance: CLOPIDOGREL BISULFATE
     Indication: BLOOD VISCOSITY INCREASED
     Dosage: 75 MG, 1X/DAY
     Route: 048
  8. DIGOXIN. [Concomitant]
     Active Substance: DIGOXIN
     Dosage: 125 MG, 1X/DAY
     Route: 048
  9. CARVEDILOL. [Concomitant]
     Active Substance: CARVEDILOL
     Indication: BLOOD PRESSURE ABNORMAL
     Dosage: 6.25 MG, 2X/DAY
     Route: 048

REACTIONS (1)
  - Nasopharyngitis [Recovering/Resolving]

NARRATIVE: CASE EVENT DATE: 20180223
